FAERS Safety Report 10581196 (Version 1)
Quarter: 2014Q4

REPORT INFORMATION
  Report Type: Spontaneous
  Country: DE (occurrence: None)
  Receive Date: 20141110
  Receipt Date: 20141110
  Transmission Date: 20150529
  Serious: Yes (Disabling, Other)
  Sender: FDA-Public Use
  Company Number: NGX_02623_2014

PATIENT
  Sex: Female
  Weight: 64 kg

DRUGS (1)
  1. QUTENZA [Suspect]
     Active Substance: CAPSAICIN
     Indication: PRODUCT USED FOR UNKNOWN INDICATION
     Dosage: 1 DF 1X [CUTANEOUS PATCH] TRANSDERMAL
     Route: 062
     Dates: start: 20141006, end: 20141006

REACTIONS (4)
  - Gait disturbance [None]
  - Application site pain [None]
  - Pain in extremity [None]
  - Wrong technique in drug usage process [None]

NARRATIVE: CASE EVENT DATE: 20141006
